FAERS Safety Report 17648715 (Version 1)
Quarter: 2020Q2

REPORT INFORMATION
  Report Type: Not Available
  Country: US (occurrence: US)
  Receive Date: 20200408
  Receipt Date: 20200408
  Transmission Date: 20200713
  Serious: No
  Sender: FDA-Public Use
  Company Number: US-NEUROCRINE BIOSCIENCES INC.-2020NBI01086

PATIENT
  Age: 70 Year
  Sex: Male

DRUGS (11)
  1. CELECOXIB. [Concomitant]
     Active Substance: CELECOXIB
  2. INGREZZA [Suspect]
     Active Substance: VALBENAZINE
     Indication: TARDIVE DYSKINESIA
     Route: 048
     Dates: start: 20190307, end: 202003
  3. ALLOPURINOL. [Concomitant]
     Active Substance: ALLOPURINOL
  4. LEVOCETIRIZINE [Concomitant]
     Active Substance: LEVOCETIRIZINE
  5. MONTELUKAST [Concomitant]
     Active Substance: MONTELUKAST SODIUM
  6. PANTOPRAZOLE [Concomitant]
     Active Substance: PANTOPRAZOLE
  7. TAMSULOSIN [Concomitant]
     Active Substance: TAMSULOSIN
  8. PRAVASTATIN. [Concomitant]
     Active Substance: PRAVASTATIN
  9. RESTASIS [Concomitant]
     Active Substance: CYCLOSPORINE
  10. BUPROPION. [Concomitant]
     Active Substance: BUPROPION
  11. VENTOLIN [Concomitant]
     Active Substance: ALBUTEROL SULFATE

REACTIONS (1)
  - Dystonia [Not Recovered/Not Resolved]

NARRATIVE: CASE EVENT DATE: 20200321
